FAERS Safety Report 6051917-6 (Version None)
Quarter: 2009Q1

REPORT INFORMATION
  Report Type: 
  Country: None (occurrence: None)
  Receive Date: 20090126
  Receipt Date: 20090115
  Transmission Date: 20090719
  Serious: Yes (Hospitalization)
  Sender: FDA-Public Use
  Company Number: FR-ASTRAZENECA-2009CG00168

PATIENT
  Age: 14502 Day
  Sex: Female

DRUGS (10)
  1. DIPRIVAN [Suspect]
     Indication: ANAESTHESIA
     Route: 042
     Dates: start: 20080610, end: 20080610
  2. ACUPAN [Suspect]
     Route: 042
     Dates: start: 20080610, end: 20080610
  3. KETOPROFEN [Suspect]
     Route: 042
     Dates: start: 20080610, end: 20080611
  4. PERFALGAN [Suspect]
     Route: 042
     Dates: start: 20080610, end: 20080611
  5. ATARAX [Suspect]
     Route: 048
     Dates: start: 20080609, end: 20080610
  6. ULTIVA [Suspect]
     Route: 042
     Dates: start: 20080610, end: 20080610
  7. TRACRIUM [Suspect]
     Route: 042
     Dates: start: 20080610, end: 20080610
  8. EPHEDRINE AGUETTANT [Suspect]
     Route: 042
     Dates: start: 20080610, end: 20080610
  9. SEVORANE [Suspect]
     Route: 055
     Dates: start: 20080610, end: 20080610
  10. LEVOTHYROX [Concomitant]

REACTIONS (3)
  - PRURITUS [None]
  - RASH [None]
  - TOXIC SKIN ERUPTION [None]
